FAERS Safety Report 9245957 (Version 2)
Quarter: 2013Q2

REPORT INFORMATION
  Report Type: Spontaneous
  Country: US (occurrence: US)
  Receive Date: 20130422
  Receipt Date: 20130530
  Transmission Date: 20140414
  Serious: No
  Sender: FDA-Public Use
  Company Number: US-PFIZER INC-2013125191

PATIENT
  Age: 81 Year
  Sex: Male
  Weight: 72.56 kg

DRUGS (4)
  1. LYRICA [Suspect]
     Indication: PARAESTHESIA
     Dosage: 75 MG, 2X/DAY
     Dates: start: 20130225
  2. LYRICA [Suspect]
     Dosage: 75 MG, 1X/DAY
     Dates: start: 201304
  3. LYRICA [Suspect]
     Dosage: 75 MG, UNK
  4. HYDROXYUREA [Concomitant]
     Dosage: 500 MG, 2X/DAY

REACTIONS (3)
  - Constipation [Unknown]
  - Abdominal pain upper [Unknown]
  - Asthenia [Unknown]
